FAERS Safety Report 6910220-X (Version None)
Quarter: 2010Q3

REPORT INFORMATION
  Report Type: 
  Country: None (occurrence: None)
  Receive Date: 20100708
  Receipt Date: 20090318
  Transmission Date: 20110219
  Serious: Yes (Life-Threatening, Other)
  Sender: FDA-Public Use
  Company Number: 2008095350

PATIENT

DRUGS (1)
  1. CHANTIX [Suspect]

REACTIONS (1)
  - SUICIDE ATTEMPT [None]
